FAERS Safety Report 10501012 (Version 1)
Quarter: 2014Q4

REPORT INFORMATION
  Report Type: Spontaneous
  Country: US (occurrence: US)
  Receive Date: 20141007
  Receipt Date: 20141007
  Transmission Date: 20150528
  Serious: No
  Sender: FDA-Public Use
  Company Number: US-SHIRE-US201406363

PATIENT
  Sex: Male
  Weight: 35.37 kg

DRUGS (2)
  1. VYVANSE [Suspect]
     Active Substance: LISDEXAMFETAMINE DIMESYLATE
     Indication: DISTURBANCE IN ATTENTION
     Dosage: 40 MG, 1X/DAY:QD
     Route: 048
     Dates: start: 2013, end: 201306
  2. VYVANSE [Suspect]
     Active Substance: LISDEXAMFETAMINE DIMESYLATE
     Indication: PSYCHOMOTOR HYPERACTIVITY
     Dosage: 20 MG, 1X/DAY:QD
     Route: 048
     Dates: start: 201302, end: 2013

REACTIONS (3)
  - Drug effect increased [Recovered/Resolved]
  - Affect lability [Recovered/Resolved]
  - Drug ineffective [Recovered/Resolved]

NARRATIVE: CASE EVENT DATE: 2013
